FAERS Safety Report 24080522 (Version 1)
Quarter: 2024Q3

REPORT INFORMATION
  Report Type: Spontaneous
  Country: AT (occurrence: AT)
  Receive Date: 20240711
  Receipt Date: 20240711
  Transmission Date: 20241016
  Serious: Yes (Death, Other)
  Sender: PFIZER
  Company Number: AT-TAKEDA-2021TUS028913

PATIENT
  Age: 58 Year
  Sex: Male

DRUGS (22)
  1. ADCETRIS [Suspect]
     Active Substance: BRENTUXIMAB VEDOTIN
     Indication: Enteropathy-associated T-cell lymphoma
     Dosage: UNK UNK, CYCLIC
     Route: 065
     Dates: start: 201711
  2. ADCETRIS [Suspect]
     Active Substance: BRENTUXIMAB VEDOTIN
     Dosage: UNK UNK, CYCLIC
     Route: 065
     Dates: start: 201712
  3. ADCETRIS [Suspect]
     Active Substance: BRENTUXIMAB VEDOTIN
     Dosage: UNK UNK, CYCLIC
     Route: 065
     Dates: start: 201801
  4. ADCETRIS [Suspect]
     Active Substance: BRENTUXIMAB VEDOTIN
     Dosage: UNK UNK, CYCLIC
     Route: 065
     Dates: start: 201802
  5. ADCETRIS [Suspect]
     Active Substance: BRENTUXIMAB VEDOTIN
     Dosage: UNK UNK, CYCLIC
     Route: 065
     Dates: start: 201803
  6. CYCLOPHOSPHAMIDE [Suspect]
     Active Substance: CYCLOPHOSPHAMIDE
     Indication: Enteropathy-associated T-cell lymphoma
     Dosage: UNK, CYCLIC
     Route: 065
     Dates: start: 201711
  7. CYCLOPHOSPHAMIDE [Suspect]
     Active Substance: CYCLOPHOSPHAMIDE
     Dosage: UNK
     Route: 065
     Dates: start: 201712
  8. CYCLOPHOSPHAMIDE [Suspect]
     Active Substance: CYCLOPHOSPHAMIDE
     Dosage: UNK
     Route: 065
     Dates: start: 201801
  9. CYCLOPHOSPHAMIDE [Suspect]
     Active Substance: CYCLOPHOSPHAMIDE
     Dosage: UNK
     Route: 065
     Dates: start: 201802
  10. CYCLOPHOSPHAMIDE [Suspect]
     Active Substance: CYCLOPHOSPHAMIDE
     Dosage: UNK
     Route: 065
     Dates: start: 201803
  11. PREDNISONE [Suspect]
     Active Substance: PREDNISONE
     Indication: Enteropathy-associated T-cell lymphoma
     Dosage: UNK, CYCLIC
     Route: 065
     Dates: start: 201711
  12. PREDNISONE [Suspect]
     Active Substance: PREDNISONE
     Dosage: UNK
     Route: 065
     Dates: start: 201712
  13. PREDNISONE [Suspect]
     Active Substance: PREDNISONE
     Dosage: UNK
     Route: 065
     Dates: start: 201801
  14. PREDNISONE [Suspect]
     Active Substance: PREDNISONE
     Dosage: UNK
     Route: 065
     Dates: start: 201802
  15. PREDNISONE [Suspect]
     Active Substance: PREDNISONE
     Dosage: UNK
     Route: 065
     Dates: start: 201803
  16. EPIRUBICIN [Suspect]
     Active Substance: EPIRUBICIN
     Indication: Enteropathy-associated T-cell lymphoma
     Dosage: UNK, CYCLIC
     Route: 065
     Dates: start: 201711
  17. EPIRUBICIN [Suspect]
     Active Substance: EPIRUBICIN
     Dosage: UNK
     Route: 065
     Dates: start: 201712
  18. EPIRUBICIN [Suspect]
     Active Substance: EPIRUBICIN
     Dosage: UNK
     Route: 065
     Dates: start: 201801
  19. EPIRUBICIN [Suspect]
     Active Substance: EPIRUBICIN
     Dosage: UNK
     Route: 065
     Dates: start: 201802
  20. EPIRUBICIN [Suspect]
     Active Substance: EPIRUBICIN
     Dosage: UNK
     Route: 065
     Dates: start: 201803
  21. RIVAROXABAN [Concomitant]
     Active Substance: RIVAROXABAN
     Indication: Enteropathy-associated T-cell lymphoma
     Dates: start: 201801
  22. GRANULOCYTE COLONY-STIMULATING FACTOR NOS [Concomitant]
     Active Substance: GRANULOCYTE COLONY-STIMULATING FACTOR NOS
     Route: 065
     Dates: start: 201712

REACTIONS (11)
  - Neoplasm progression [Fatal]
  - Febrile neutropenia [Unknown]
  - Neutropenia [Unknown]
  - Polyneuropathy [Unknown]
  - Acute kidney injury [Unknown]
  - Tumour lysis syndrome [Unknown]
  - Escherichia sepsis [Unknown]
  - Pancytopenia [Unknown]
  - Large intestine perforation [Unknown]
  - Multiple organ dysfunction syndrome [Unknown]
  - Stomatitis [Unknown]

NARRATIVE: CASE EVENT DATE: 20170101
